FAERS Safety Report 4546222-0 (Version None)
Quarter: 2005Q1

REPORT INFORMATION
  Report Type: 
  Country: None (occurrence: None)
  Receive Date: 20050106
  Receipt Date: 20041026
  Transmission Date: 20050727
  Serious: Yes (Death, Hospitalization)
  Sender: FDA-Public Use
  Company Number: US-ROCHE-384456

PATIENT
  Age: 75 Year
  Sex: Female
  Weight: 81.1 kg

DRUGS (13)
  1. CAPECITABINE [Suspect]
     Dosage: ACTUAL DOSE 1650MG
     Route: 065
     Dates: start: 20040802, end: 20040828
  2. IRESSA [Suspect]
     Route: 065
     Dates: start: 20040802, end: 20040828
  3. TUMS [Concomitant]
  4. MARINOL [Concomitant]
  5. IMODIUM [Concomitant]
  6. COMPAZINE [Concomitant]
  7. TYLENOL [Concomitant]
  8. OXYCODONE HCL [Concomitant]
  9. LORAZEPAM [Concomitant]
  10. ZOFRAN [Concomitant]
  11. ACTOS [Concomitant]
  12. INSULIN [Concomitant]
  13. LOMOTIL [Concomitant]

REACTIONS (9)
  - COAGULOPATHY [None]
  - COUGH [None]
  - DEHYDRATION [None]
  - DISEASE PROGRESSION [None]
  - HEPATIC LESION [None]
  - HYPOTENSION [None]
  - MALIGNANT NEOPLASM PROGRESSION [None]
  - PANCREATIC CARCINOMA [None]
  - POST PROCEDURAL DIARRHOEA [None]
